FAERS Safety Report 10425656 (Version 1)
Quarter: 2014Q3

REPORT INFORMATION
  Report Type: Spontaneous
  Country: CA (occurrence: CA)
  Receive Date: 20140903
  Receipt Date: 20140903
  Transmission Date: 20150326
  Serious: Yes (Other)
  Sender: FDA-Public Use
  Company Number: CA-ROCHE-1456674

PATIENT
  Sex: Male

DRUGS (2)
  1. TAFINLAR [Suspect]
     Active Substance: DABRAFENIB MESYLATE
     Indication: METASTATIC MALIGNANT MELANOMA
     Dosage: DAILY
     Route: 065
  2. ZELBORAF [Suspect]
     Active Substance: VEMURAFENIB
     Indication: PRODUCT USED FOR UNKNOWN INDICATION
     Route: 065

REACTIONS (8)
  - Alopecia [Unknown]
  - Pharyngeal hypoaesthesia [Unknown]
  - Rash [Unknown]
  - Arthropathy [Unknown]
  - Hepatitis [Unknown]
  - Pharyngeal disorder [Unknown]
  - Muscular weakness [Unknown]
  - Pruritus [Recovered/Resolved]
